FAERS Safety Report 7249065-2 (Version None)
Quarter: 2011Q1

REPORT INFORMATION
  Report Type: 
  Country: None (occurrence: None)
  Receive Date: 20110128
  Receipt Date: 20100825
  Transmission Date: 20110831
  Serious: Yes (Other)
  Sender: FDA-Public Use
  Company Number: US-BAYER-201030244NA

PATIENT
  Sex: Female
  Weight: 97.506 kg

DRUGS (5)
  1. OCELLA [Suspect]
     Indication: MENSTRUAL DISORDER
  2. YAZ [Suspect]
     Indication: MENSTRUAL DISORDER
  3. YAZ [Suspect]
     Indication: CONTRACEPTION
     Dosage: UNK UNK, UNK
     Route: 048
     Dates: start: 20080101, end: 20100615
  4. OCELLA [Suspect]
     Indication: CONTRACEPTION
     Dates: start: 20000101, end: 20100615
  5. YASMIN [Suspect]
     Indication: PRODUCT USED FOR UNKNOWN INDICATION
     Dosage: UNK UNK, UNK
     Route: 048
     Dates: end: 20080101

REACTIONS (1)
  - CHOLECYSTECTOMY [None]
